FAERS Safety Report 13341717 (Version 2)
Quarter: 2019Q1

REPORT INFORMATION
  Report Type: Spontaneous
  Country: US (occurrence: US)
  Receive Date: 20170316
  Receipt Date: 20190214
  Transmission Date: 20190417
  Serious: No
  Sender: FDA-Public Use
  Company Number: US-ROCHE-1828644

PATIENT
  Sex: Male

DRUGS (15)
  1. LOPERAMIDE [Concomitant]
     Active Substance: LOPERAMIDE
  2. CLARITIN [Concomitant]
     Active Substance: LORATADINE
  3. AQUAPHOR (UNITED STATES) [Concomitant]
  4. BUTALBITAL [Concomitant]
     Active Substance: BUTALBITAL
  5. ERIVEDGE [Suspect]
     Active Substance: VISMODEGIB
     Indication: BASAL CELL CARCINOMA
     Route: 048
     Dates: start: 20160804
  6. ACETAMINOPHEN. [Concomitant]
     Active Substance: ACETAMINOPHEN
  7. LOSARTAN POTASSIUM. [Concomitant]
     Active Substance: LOSARTAN POTASSIUM
  8. LORAZEPAM. [Concomitant]
     Active Substance: LORAZEPAM
  9. NORCO [Concomitant]
     Active Substance: ACETAMINOPHEN\HYDROCODONE BITARTRATE
  10. ERIVEDGE [Suspect]
     Active Substance: VISMODEGIB
     Route: 048
     Dates: start: 20160806
  11. PHENYTOIN. [Concomitant]
     Active Substance: PHENYTOIN
  12. COMPAZINE [Concomitant]
     Active Substance: PROCHLORPERAZINE MALEATE
  13. VENLAFAXINE [Concomitant]
     Active Substance: VENLAFAXINE HYDROCHLORIDE
  14. CAFFEINE. [Concomitant]
     Active Substance: CAFFEINE
  15. KEPPRA [Concomitant]
     Active Substance: LEVETIRACETAM

REACTIONS (6)
  - Nausea [Recovered/Resolved]
  - Hyperhidrosis [Recovered/Resolved]
  - Vomiting [Unknown]
  - Sleep apnoea syndrome [Unknown]
  - Alopecia [Unknown]
  - Headache [Unknown]
